FAERS Safety Report 22350966 (Version 4)
Quarter: 2023Q4

REPORT INFORMATION
  Report Type: Report from Study
  Country: SE (occurrence: SE)
  Receive Date: 20230522
  Receipt Date: 20231011
  Transmission Date: 20240110
  Serious: Yes (Hospitalization, Other)
  Sender: FDA-Public Use
  Company Number: SE-TAKEDA-2023TUS049107

PATIENT
  Age: 70 Year
  Sex: Male

DRUGS (17)
  1. TEDUGLUTIDE [Suspect]
     Active Substance: TEDUGLUTIDE
     Indication: Short-bowel syndrome
     Dosage: 2.8 MILLIGRAM, QD
     Route: 042
     Dates: start: 20200312
  2. TEDUGLUTIDE [Suspect]
     Active Substance: TEDUGLUTIDE
     Indication: Short-bowel syndrome
     Dosage: 2.8 MILLIGRAM, QD
     Route: 042
     Dates: start: 20200312
  3. TEDUGLUTIDE [Suspect]
     Active Substance: TEDUGLUTIDE
     Indication: Short-bowel syndrome
     Dosage: 2.8 MILLIGRAM, QD
     Route: 042
     Dates: start: 20200312
  4. TEDUGLUTIDE [Suspect]
     Active Substance: TEDUGLUTIDE
     Indication: Short-bowel syndrome
     Dosage: 2.8 MILLIGRAM, QD
     Route: 042
     Dates: start: 20200312
  5. THIAMINE [Concomitant]
     Active Substance: THIAMINE
     Indication: Optic neuropathy
     Dosage: 200 MILLIGRAM, SINGLE
     Route: 042
     Dates: start: 20230330, end: 20230330
  6. ALBUMIN HUMAN [Concomitant]
     Active Substance: ALBUMIN HUMAN
     Indication: Squamous cell carcinoma of skin
     Dosage: 40 GRAM, SINGLE
     Route: 042
     Dates: start: 20230213, end: 20230213
  7. ALBUMIN HUMAN [Concomitant]
     Active Substance: ALBUMIN HUMAN
     Dosage: 40 GRAM, SINGLE
     Route: 042
     Dates: start: 20230227, end: 20230227
  8. PANTOPRAZOLE SODIUM [Concomitant]
     Active Substance: PANTOPRAZOLE SODIUM
     Indication: Gastritis
     Dosage: 20 MILLIGRAM, BID
     Route: 048
     Dates: start: 20230119
  9. ESOMEPRAZOLE [Concomitant]
     Active Substance: ESOMEPRAZOLE
     Indication: Oesophagitis
     Dosage: 40 MILLIGRAM, BID
     Route: 065
  10. LOPERAMIDE [Concomitant]
     Active Substance: LOPERAMIDE
     Indication: Diarrhoea
     Dosage: 2 MILLIGRAM
     Route: 065
  11. DETREMIN [Concomitant]
     Indication: Vitamin D deficiency
     Dosage: 800 INTERNATIONAL UNIT, QD
     Route: 065
  12. CALCIUM CARBONATE [Concomitant]
     Active Substance: CALCIUM CARBONATE
     Indication: Calcium deficiency
     Dosage: 500 MILLIGRAM, QD
     Route: 065
  13. CALCIUM CARBONATE [Concomitant]
     Active Substance: CALCIUM CARBONATE
     Indication: Vitamin D deficiency
  14. SOLVEZINK [Concomitant]
     Indication: Zinc deficiency
     Dosage: 45 MILLIGRAM, QD
     Route: 065
  15. INFLECTRA [Concomitant]
     Active Substance: INFLIXIMAB-DYYB
     Indication: Crohn^s disease
     Dosage: 300 MILLIGRAM
     Route: 042
  16. PROPIOMAZINE [Concomitant]
     Active Substance: PROPIOMAZINE
     Indication: Sleep disorder
     Dosage: 25 MILLIGRAM, QD
     Route: 065
  17. HYDROXOCOBALAMIN ALTERNOVA [Concomitant]
     Dosage: 1 MILLIGRAM, QD
     Route: 065

REACTIONS (1)
  - Glioblastoma [Recovered/Resolved with Sequelae]

NARRATIVE: CASE EVENT DATE: 20230508
